FAERS Safety Report 7026574-2 (Version None)
Quarter: 2010Q4

REPORT INFORMATION
  Report Type: 
  Country: None (occurrence: None)
  Receive Date: 20101004
  Receipt Date: 20100921
  Transmission Date: 20110411
  Serious: Yes (Hospitalization, Other)
  Sender: FDA-Public Use
  Company Number: US-ELI_LILLY_AND_COMPANY-US201009005880

PATIENT
  Sex: Female

DRUGS (11)
  1. FORTEO [Suspect]
     Indication: OSTEOPOROSIS
     Dosage: 20 UG, DAILY (1/D)
  2. NITROGLYCERIN [Concomitant]
  3. ZYRTEC [Concomitant]
  4. ACTONEL [Concomitant]
  5. BETOPTIC [Concomitant]
  6. TRAVATAN [Concomitant]
  7. PRILOSEC [Concomitant]
  8. ALIGN [Concomitant]
  9. VITAMIN D3 [Concomitant]
  10. CALCIUM [Concomitant]
  11. LACTAID [Concomitant]

REACTIONS (2)
  - FALL [None]
  - FEMUR FRACTURE [None]
